FAERS Safety Report 14665135 (Version 1)
Quarter: 2018Q1

REPORT INFORMATION
  Report Type: Spontaneous
  Country: US (occurrence: US)
  Receive Date: 20180319
  Receipt Date: 20180319
  Transmission Date: 20180509
  Serious: No
  Sender: FDA-Public Use
  Company Number: None

PATIENT
  Age: 60 Year
  Sex: Female
  Weight: 90 kg

DRUGS (3)
  1. KRATOM [Suspect]
     Active Substance: MITRAGYNINE\HERBALS
     Indication: ANALGESIC THERAPY
     Dosage: ?          QUANTITY:4 CAPSULE(S);?
     Route: 048
     Dates: start: 20180115, end: 20180315
  2. ANTIDEPRESSANTS [Concomitant]
     Active Substance: UNSPECIFIED INGREDIENT
  3. LIMU [Concomitant]

REACTIONS (8)
  - Feeding disorder [None]
  - Pyrexia [None]
  - Flatulence [None]
  - Pain [None]
  - Gastric disorder [None]
  - Nausea [None]
  - Abdominal pain upper [None]
  - Headache [None]

NARRATIVE: CASE EVENT DATE: 20180315
